FAERS Safety Report 5089519-0 (Version None)
Quarter: 2006Q3

REPORT INFORMATION
  Report Type: 
  Country: None (occurrence: None)
  Receive Date: 20060822
  Receipt Date: 20060801
  Transmission Date: 20061208
  Serious: Yes (Death)
  Sender: FDA-Public Use
  Company Number: US200607002145

PATIENT
  Age: 55 Year
  Sex: Female
  Weight: 129.3 kg

DRUGS (9)
  1. CYMBALTA [Suspect]
     Dosage: 60 MG
     Dates: start: 20051122
  2. ZOCOR [Concomitant]
  3. ACTOS [Concomitant]
  4. NEXIUM [Concomitant]
  5. SKELAXIN [Concomitant]
  6. HYDROCODONE (HYDROCODONE) [Concomitant]
  7. PREGABALIN (PREGABALIN) [Concomitant]
  8. DITROPAN XL [Concomitant]
  9. ALBUTEROL [Concomitant]

REACTIONS (2)
  - DISCOMFORT [None]
  - FALL [None]
